FAERS Safety Report 8607803-8 (Version None)
Quarter: 2012Q3

REPORT INFORMATION
  Report Type: 
  Country: None (occurrence: None)
  Receive Date: 20120723
  Receipt Date: 20120709
  Transmission Date: 20120928
  Serious: Yes (Hospitalization)
  Sender: FDA-Public Use
  Company Number: 2012PROUSA01625

PATIENT
  Age: 74 Year
  Sex: Male
  Weight: 76.2 kg

DRUGS (6)
  1. CALCIUM +D (CALCIUM CARBONATE, COLECALCIFEROL) [Concomitant]
  2. PROVENGE [Suspect]
  3. CLARINEX [Concomitant]
  4. DIOVAN [Concomitant]
  5. PROVENGE [Suspect]
     Indication: PROSTATE CANCER METASTATIC
     Dosage: 250 ML, SINGLE, INTRAVENOUS
     Route: 042
     Dates: start: 20120621, end: 20120621
  6. PROVENGE [Suspect]
     Indication: PROSTATE CANCER METASTATIC
     Dosage: 250 ML, SINGLE, INTRAVENOUS
     Route: 042
     Dates: start: 20120705, end: 20120705

REACTIONS (4)
  - HEART RATE DECREASED [None]
  - BLOOD PRESSURE DECREASED [None]
  - CHILLS [None]
  - INFUSION RELATED REACTION [None]
